FAERS Safety Report 6293660-4 (Version None)
Quarter: 2009Q3

REPORT INFORMATION
  Report Type: 
  Country: None (occurrence: None)
  Receive Date: 20090729
  Receipt Date: 20090717
  Transmission Date: 20100115
  Serious: Yes (Death)
  Sender: FDA-Public Use
  Company Number: A-JP2009-26424

PATIENT
  Sex: Male

DRUGS (7)
  1. TRACLEER [Suspect]
     Indication: PULMONARY ARTERIAL HYPERTENSION
     Dosage: ORAL
     Route: 048
  2. DOBUTAMINE HCL [Concomitant]
  3. FUROSEMIDE [Concomitant]
  4. MILRINONE LACTATE [Concomitant]
  5. SILDENAFIL CITRATE [Concomitant]
  6. EPOPROSTENOL SODIUM [Concomitant]
  7. OXYGEN (OXYGEN) [Concomitant]

REACTIONS (3)
  - CARDIAC FAILURE [None]
  - COR PULMONALE [None]
  - ILEUS [None]
